FAERS Safety Report 20815694 (Version 2)
Quarter: 2022Q2

REPORT INFORMATION
  Report Type: Report from Study
  Country: DE (occurrence: None)
  Receive Date: 20220511
  Receipt Date: 20220520
  Transmission Date: 20220721
  Serious: Yes (Hospitalization)
  Sender: FDA-Public Use
  Company Number: DE-ROCHE-3090864

PATIENT
  Age: 82 Year
  Sex: Male
  Weight: 78 kg

DRUGS (3)
  1. ATEZOLIZUMAB [Suspect]
     Active Substance: ATEZOLIZUMAB
     Indication: Oesophageal squamous cell carcinoma
     Dosage: START DATE OF MOST RECENT DOSE OF STUDY DRUG?PRIOR TO AE/SAE 14/APR/2022
     Route: 042
     Dates: start: 20220322
  2. PLACEBO [Suspect]
     Active Substance: UNSPECIFIED INGREDIENT
     Indication: Oesophageal squamous cell carcinoma
     Dosage: START DATE OF MOST RECENT DOSE OF STUDY DRUG?PRIOR TO AE/SAE WAS 14/APR/2022
     Route: 042
     Dates: start: 20220322
  3. FEBUXOSTAT [Concomitant]
     Active Substance: FEBUXOSTAT
     Indication: Gout
     Route: 048
     Dates: start: 202202

REACTIONS (1)
  - Respiratory failure [Not Recovered/Not Resolved]

NARRATIVE: CASE EVENT DATE: 20220502
